FAERS Safety Report 8861670 (Version 1)
Quarter: 2012Q4

REPORT INFORMATION
  Report Type: 
  Country: US (occurrence: US)
  Receive Date: 20121025
  Receipt Date: 20121025
  Transmission Date: 20130627
  Serious: No
  Sender: FDA-Public Use
  Company Number: US-AMGEN-USASP2012019452

PATIENT
  Age: 55 Year
  Sex: Male

DRUGS (11)
  1. ENBREL [Suspect]
     Indication: PRODUCT USED FOR UNKNOWN INDICATION
     Dosage: 25 mg, 2 times/wk
     Route: 058
  2. METHOTREXATE [Concomitant]
     Dosage: 2.5 mg, UNK
  3. LIDODERM [Concomitant]
     Dosage: 5 %, UNK
  4. TRAMADOL [Concomitant]
     Dosage: 50 mg, UNK
  5. CEPHALEXIN                         /00145501/ [Concomitant]
     Dosage: 250 mg, UNK
  6. TRIAMCINOLONE [Concomitant]
     Dosage: .025 %, UNK
  7. FOLIC ACID [Concomitant]
  8. VITAMIN D /00107901/ [Concomitant]
  9. FISH OIL [Concomitant]
  10. MULTIVITAMINS [Concomitant]
  11. FIBER CHOICE PLUS CALCIUM [Concomitant]

REACTIONS (3)
  - Rhinorrhoea [Recovering/Resolving]
  - Rash [Unknown]
  - Oral herpes [Recovering/Resolving]
